FAERS Safety Report 5504247-2 (Version None)
Quarter: 2007Q4

REPORT INFORMATION
  Report Type: 
  Country: None (occurrence: None)
  Receive Date: 20071029
  Receipt Date: 20071012
  Transmission Date: 20080405
  Serious: No
  Sender: FDA-Public Use
  Company Number: 2007-165715-NL

PATIENT
  Sex: Female

DRUGS (3)
  1. ETONOGESTREL (SEE ATTACHED PAGES FOR ADDITIONAL SUSPECT DRUGS) [Suspect]
     Indication: CONTRACEPTION
     Dosage: DF
  2. MYCOPHENOLATE SODIUM [Suspect]
     Indication: RENAL TRANSPLANT
     Dosage: DF
  3. SIROLIMUS [Concomitant]

REACTIONS (2)
  - BLOOD CREATININE INCREASED [None]
  - DRUG INTERACTION [None]
